FAERS Safety Report 26040920 (Version 1)
Quarter: 2025Q4

REPORT INFORMATION
  Report Type: Report from Study
  Country: US (occurrence: US)
  Receive Date: 20251113
  Receipt Date: 20251113
  Transmission Date: 20260117
  Serious: Yes (Other)
  Sender: ABBVIE
  Company Number: US-ABBVIE-5815959

PATIENT
  Age: 61 Year
  Sex: Female

DRUGS (3)
  1. SKYRIZI [Suspect]
     Active Substance: RISANKIZUMAB-RZAA
     Indication: Psoriasis
     Route: 058
     Dates: start: 20230914
  2. SKYRIZI [Suspect]
     Active Substance: RISANKIZUMAB-RZAA
     Route: 058
  3. SKYRIZI [Suspect]
     Active Substance: RISANKIZUMAB-RZAA
     Route: 058

REACTIONS (11)
  - Limb operation [Recovering/Resolving]
  - Psoriatic arthropathy [Not Recovered/Not Resolved]
  - Hypertension [Recovering/Resolving]
  - Scoliosis [Recovering/Resolving]
  - Glucose tolerance impaired [Not Recovered/Not Resolved]
  - Sinus disorder [Recovering/Resolving]
  - Bursitis [Unknown]
  - Pain [Unknown]
  - Feeling cold [Unknown]
  - Headache [Unknown]
  - Malaise [Unknown]

NARRATIVE: CASE EVENT DATE: 20251106
